FAERS Safety Report 12182385 (Version 2)
Quarter: 2016Q1

REPORT INFORMATION
  Report Type: Spontaneous
  Country: SG (occurrence: SG)
  Receive Date: 20160316
  Receipt Date: 20160321
  Transmission Date: 20160526
  Serious: Yes (Other)
  Sender: FDA-Public Use
  Company Number: SG-ROCHE-1726137

PATIENT
  Age: 37 Year
  Sex: Male
  Weight: 66 kg

DRUGS (6)
  1. OXALIPLATIN. [Concomitant]
     Active Substance: OXALIPLATIN
     Dosage: 2 CYCLES
     Route: 065
  2. DEXAMETHASONE. [Concomitant]
     Active Substance: DEXAMETHASONE
     Route: 042
     Dates: start: 20160222, end: 20160222
  3. ELOXATIN [Suspect]
     Active Substance: OXALIPLATIN
     Indication: COLON CANCER METASTATIC
     Route: 042
     Dates: start: 20160222, end: 20160222
  4. XELODA [Suspect]
     Active Substance: CAPECITABINE
     Indication: COLON CANCER METASTATIC
     Dosage: 2 CYCLES?2.5G / DAY, DAILY FOR 14 DAYS
     Route: 048
     Dates: start: 20160222, end: 20160307
  5. EMEND [Concomitant]
     Active Substance: APREPITANT
     Dosage: 2 CYCLES?TRIPACK, FOR 3 DAYS
     Route: 048
     Dates: start: 20160222, end: 20160224
  6. KYTRIL [Concomitant]
     Active Substance: GRANISETRON HYDROCHLORIDE
     Route: 042
     Dates: start: 20160222, end: 20160222

REACTIONS (2)
  - Blindness transient [Recovered/Resolved]
  - Tunnel vision [Recovered/Resolved]

NARRATIVE: CASE EVENT DATE: 20160222
